FAERS Safety Report 13407214 (Version 7)
Quarter: 2019Q2

REPORT INFORMATION
  Report Type: Report from Study
  Country: US (occurrence: US)
  Receive Date: 20170405
  Receipt Date: 20190628
  Transmission Date: 20190711
  Serious: Yes (Hospitalization, Other)
  Sender: FDA-Public Use
  Company Number: US-ACTELION-A-US2016-133774

PATIENT
  Age: 76 Year
  Sex: Female
  Weight: 85.26 kg

DRUGS (5)
  1. RIOCIGUAT. [Concomitant]
     Active Substance: RIOCIGUAT
  2. LETAIRIS [Concomitant]
     Active Substance: AMBRISENTAN
  3. UPTRAVI [Suspect]
     Active Substance: SELEXIPAG
     Indication: PULMONARY ARTERIAL HYPERTENSION
     Dosage: 800 MCG, BID
     Route: 048
  4. ELIQUIS [Concomitant]
     Active Substance: APIXABAN
  5. UPTRAVI [Suspect]
     Active Substance: SELEXIPAG
     Dosage: 1000 MCG, BID
     Route: 048

REACTIONS (24)
  - Bronchitis [Unknown]
  - Neck pain [Unknown]
  - Back pain [Unknown]
  - Pain in extremity [Unknown]
  - Dizziness [Unknown]
  - Hypotension [Unknown]
  - Infection [Unknown]
  - Diarrhoea [Unknown]
  - Inflammation [Unknown]
  - Fluid retention [Unknown]
  - Urinary tract infection [Unknown]
  - Blood potassium decreased [Unknown]
  - Oxygen saturation decreased [Unknown]
  - Headache [Unknown]
  - Blood iron decreased [Unknown]
  - Spinal disorder [Unknown]
  - Cardiac assistance device user [Unknown]
  - Nausea [Unknown]
  - Malaise [Unknown]
  - Cardiac failure congestive [Unknown]
  - Pancreatic enzymes increased [Unknown]
  - Ulcer haemorrhage [Unknown]
  - Fall [Unknown]
  - Musculoskeletal pain [Unknown]

NARRATIVE: CASE EVENT DATE: 20190407
